FAERS Safety Report 9452559 (Version 1)
Quarter: 2013Q3

REPORT INFORMATION
  Report Type: Spontaneous
  Country: US (occurrence: US)
  Receive Date: 20130812
  Receipt Date: 20130812
  Transmission Date: 20140515
  Serious: No
  Sender: FDA-Public Use
  Company Number: US-PFIZER INC-2013229889

PATIENT
  Age: 43 Year
  Sex: Male
  Weight: 105 kg

DRUGS (5)
  1. ZIPRASIDONE HCL [Suspect]
     Indication: ANXIETY
     Dosage: 80 MG, ONCE A DAY
     Route: 048
  2. ZIPRASIDONE HCL [Suspect]
     Indication: DEPRESSION
  3. ZIPRASIDONE HCL [Suspect]
     Indication: OBSESSIVE-COMPULSIVE DISORDER
  4. ZIPRASIDONE HCL [Suspect]
     Indication: SLEEP DISORDER
  5. PAXIL [Concomitant]
     Dosage: UNK

REACTIONS (2)
  - Off label use [Unknown]
  - Drug ineffective for unapproved indication [Unknown]
